FAERS Safety Report 17261575 (Version 1)
Quarter: 2019Q4

REPORT INFORMATION
  Report Type: Spontaneous
  Country: US (occurrence: US)
  Receive Date: 20191218
  Receipt Date: 20191218
  Transmission Date: 20200122
  Serious: Yes (Hospitalization)
  Sender: FDA-Public Use
  Company Number: None

PATIENT
  Age: 65 Year
  Sex: Female

DRUGS (2)
  1. ONDANSETRON HYDROCHLORIDE 8MG GLENMARK PHARMACEUTICALS [Suspect]
     Active Substance: ONDANSETRON HYDROCHLORIDE
     Indication: CHRONIC MYELOID LEUKAEMIA
     Route: 048
     Dates: start: 20180125
  2. SPRYCEL [Suspect]
     Active Substance: DASATINIB
     Indication: CHRONIC MYELOID LEUKAEMIA
     Route: 048
     Dates: start: 20180125

REACTIONS (3)
  - Renal disorder [None]
  - Blood potassium increased [None]
  - Pleural effusion [None]

NARRATIVE: CASE EVENT DATE: 201910
